FAERS Safety Report 11780329 (Version 1)
Quarter: 2015Q4

REPORT INFORMATION
  Report Type: Spontaneous
  Country: US (occurrence: US)
  Receive Date: 20151126
  Receipt Date: 20151126
  Transmission Date: 20160305
  Serious: No
  Sender: FDA-Public Use
  Company Number: US-JNJFOC-20151017246

PATIENT
  Age: 86 Year
  Sex: Female
  Weight: 81.65 kg

DRUGS (9)
  1. ATIVAN [Suspect]
     Active Substance: LORAZEPAM
     Indication: AGORAPHOBIA
     Dosage: 0.25/3X DAILY
     Route: 065
  2. METOPROLOL [Suspect]
     Active Substance: METOPROLOL
     Indication: BLOOD PRESSURE MEASUREMENT
     Dosage: DAILY
     Route: 065
  3. VITAMIN B6 [Suspect]
     Active Substance: PYRIDOXINE HYDROCHLORIDE
     Indication: SUPPLEMENTATION THERAPY
     Dosage: DAILY
     Route: 065
  4. VITAMIN B-1 [Suspect]
     Active Substance: THIAMINE
     Indication: SUPPLEMENTATION THERAPY
     Dosage: DAILY
     Route: 065
  5. FISH OIL [Suspect]
     Active Substance: FISH OIL
     Indication: SUPPLEMENTATION THERAPY
     Dosage: DAILY
     Route: 065
  6. MULTIVITAMINS [Suspect]
     Active Substance: VITAMINS
     Indication: SUPPLEMENTATION THERAPY
     Dosage: DAILY
     Route: 065
  7. TYLENOL EXTRA STRENGTH [Suspect]
     Active Substance: ACETAMINOPHEN
     Indication: HEADACHE
     Dosage: 1X DAILY FOR 3-4 DAYS
     Route: 048
     Dates: end: 20151021
  8. VITAMIN B5 [Suspect]
     Active Substance: PANTOTHENIC ACID
     Indication: SUPPLEMENTATION THERAPY
     Dosage: DAILY
     Route: 065
  9. VITAMIN-A [Suspect]
     Active Substance: VITAMIN A
     Indication: SUPPLEMENTATION THERAPY
     Dosage: DAILY
     Route: 065

REACTIONS (2)
  - Nausea [Not Recovered/Not Resolved]
  - Wrong technique in product usage process [Not Recovered/Not Resolved]
